FAERS Safety Report 20763553 (Version 10)
Quarter: 2024Q1

REPORT INFORMATION
  Report Type: Spontaneous
  Country: US (occurrence: US)
  Receive Date: 20220428
  Receipt Date: 20240319
  Transmission Date: 20240410
  Serious: No
  Sender: FDA-Public Use
  Company Number: US-PFIZER INC-202200499102

PATIENT
  Age: 77 Year
  Sex: Female
  Weight: 55.34 kg

DRUGS (2)
  1. IBRANCE [Suspect]
     Active Substance: PALBOCICLIB
     Indication: Breast cancer female
     Dosage: 3 WEEKS AND THEN TAKE 1 WEEK OFF
     Route: 048
     Dates: start: 20220303
  2. IBRANCE [Suspect]
     Active Substance: PALBOCICLIB
     Dosage: 75 MG
     Route: 048

REACTIONS (1)
  - Headache [Unknown]

NARRATIVE: CASE EVENT DATE: 20220301
